FAERS Safety Report 25390596 (Version 1)
Quarter: 2025Q2

REPORT INFORMATION
  Report Type: Spontaneous
  Country: US (occurrence: US)
  Receive Date: 20250603
  Receipt Date: 20250603
  Transmission Date: 20250716
  Serious: Yes (Other)
  Sender: AMGEN
  Company Number: US-AMGEN-USASP2025105880

PATIENT
  Age: 66 Year
  Sex: Male

DRUGS (7)
  1. TRASTUZUMAB [Suspect]
     Active Substance: TRASTUZUMAB
     Indication: Adenocarcinoma gastric
     Dosage: 8 MILLIGRAM/KILOGRAM, Q2WK (INITIAL LODING DOSE)
     Route: 040
  2. TRASTUZUMAB [Suspect]
     Active Substance: TRASTUZUMAB
     Dosage: 6 MILLIGRAM/KILOGRAM, Q3WK (TOTAL OF NINE CYCLES)
     Route: 040
  3. TRASTUZUMAB [Suspect]
     Active Substance: TRASTUZUMAB
     Dosage: UNK, Q4WK (REGIMEN WAS ADJUSTED ADDITIONAL SIX CYCLES)
     Route: 040
  4. OXALIPLATIN [Concomitant]
     Active Substance: OXALIPLATIN
  5. FLUOROURACIL [Concomitant]
     Active Substance: FLUOROURACIL
  6. LEUCOVORIN [Concomitant]
     Active Substance: LEUCOVORIN\LEUCOVORIN CALCIUM
  7. PEMBROLIZUMAB [Concomitant]
     Active Substance: PEMBROLIZUMAB
     Dosage: 200 MILLIGRAM, Q4WK

REACTIONS (3)
  - Adenocarcinoma gastric [Unknown]
  - Neuropathy peripheral [Unknown]
  - Therapy partial responder [Unknown]
